FAERS Safety Report 10552022 (Version 2)
Quarter: 2014Q4

REPORT INFORMATION
  Report Type: Spontaneous
  Country: US (occurrence: None)
  Receive Date: 20141027
  Receipt Date: 20141114
  Transmission Date: 20150529
  Serious: Yes (Other)
  Sender: FDA-Public Use
  Company Number: ADR-2014-01130

PATIENT
  Sex: Female

DRUGS (11)
  1. BACLOFEN INTRATHECAL [Suspect]
     Active Substance: BACLOFEN
     Indication: MULTIPLE SCLEROSIS
     Dates: end: 20140606
  2. CALCIUM [Suspect]
     Active Substance: CALCIUM
  3. VITAMIN D [Suspect]
     Active Substance: CHOLECALCIFEROL
  4. CYMBALTA [Suspect]
     Active Substance: DULOXETINE HYDROCHLORIDE
  5. MULTIVITAMIN [Suspect]
     Active Substance: VITAMINS
  6. IRON [Suspect]
     Active Substance: IRON
  7. ASPIRIN. [Suspect]
     Active Substance: ASPIRIN
  8. GABAPENTIN. [Suspect]
     Active Substance: GABAPENTIN
  9. LINZESS [Suspect]
     Active Substance: LINACLOTIDE
  10. NUVIGIL [Suspect]
     Active Substance: ARMODAFINIL
  11. LIORESAL [Suspect]
     Active Substance: BACLOFEN
     Indication: MULTIPLE SCLEROSIS
     Dates: start: 20140606

REACTIONS (10)
  - Malaise [None]
  - Vomiting [None]
  - Overdose [None]
  - Depressed level of consciousness [None]
  - Faecal incontinence [None]
  - Hydrocephalus [None]
  - Urinary incontinence [None]
  - Arachnoid cyst [None]
  - Transient ischaemic attack [None]
  - Unevaluable event [None]
